FAERS Safety Report 6888352-4 (Version None)
Quarter: 2010Q3

REPORT INFORMATION
  Report Type: 
  Country: None (occurrence: None)
  Receive Date: 20100730
  Receipt Date: 20100715
  Transmission Date: 20110219
  Serious: Yes (Other)
  Sender: FDA-Public Use
  Company Number: CHPA2010US12134

PATIENT
  Sex: Female

DRUGS (1)
  1. 1-DAY VAGINAL OINTMENT (NCH) [Suspect]
     Indication: VULVOVAGINAL MYCOTIC INFECTION
     Dosage: 300 MG, ONCE/SINGLE
     Route: 067
     Dates: start: 20100712, end: 20100712

REACTIONS (4)
  - THERMAL BURN [None]
  - VAGINAL EXFOLIATION [None]
  - VAGINAL HAEMORRHAGE [None]
  - VAGINAL SWELLING [None]
